FAERS Safety Report 21178773 (Version 1)
Quarter: 2022Q3

REPORT INFORMATION
  Report Type: Spontaneous
  Country: CA (occurrence: CA)
  Receive Date: 20220805
  Receipt Date: 20220805
  Transmission Date: 20221027
  Serious: No
  Sender: FDA-Public Use
  Company Number: CA-JAZZ-2022-CA-014050

PATIENT
  Sex: Female

DRUGS (14)
  1. XYREM [Suspect]
     Active Substance: SODIUM OXYBATE
     Indication: Cataplexy
     Dosage: DOSE : 4.5G FREQUENCY : DIVIDED IN
     Route: 048
  2. XYREM [Suspect]
     Active Substance: SODIUM OXYBATE
     Indication: Narcolepsy
     Dosage: DOSE : 4G FREQUENCY : DIVIDED IN TWO EQUAL DOSES (QHS AND 2.5 - 4HRS AFTER 1ST DOSE)
     Dates: start: 20200601, end: 20200826
  3. XYREM [Suspect]
     Active Substance: SODIUM OXYBATE
     Dosage: DOSE : 3.5G FREQUENCY : DIVIDED IN TWO EQUAL DOSES (QHS AND 2.5 - 4HRS AFTER 1ST DOSE)
     Dates: start: 20200516, end: 20200531
  4. XYREM [Suspect]
     Active Substance: SODIUM OXYBATE
     Dosage: DOSE : 3G FREQUENCY : DIVIDED IN TWO EQUAL DOSES (QHS AND 2.5 - 4HRS AFTER 1ST DOSE)
     Dates: start: 20200430, end: 20200514
  5. XYREM [Suspect]
     Active Substance: SODIUM OXYBATE
     Dosage: DOSE : 2.5G FREQUENCY : DIVIDED IN TWO EQUAL DOSES (QHS AND 2.5 - 4HRS AFTER 1ST DOSE)
     Dates: start: 20200310, end: 20200429
  6. XYREM [Suspect]
     Active Substance: SODIUM OXYBATE
     Dosage: DOSE : 1.5G FREQUENCY : DIVIDED IN TWO EQUAL DOSES (QHS AND 2.5 - 4HRS AFTER 1ST DOSE)
     Dates: start: 20200212, end: 20200309
  7. GABAPENTIN [Concomitant]
     Active Substance: GABAPENTIN
     Dosage: DOSE : 200 MG
  8. GABAPENTIN [Concomitant]
     Active Substance: GABAPENTIN
     Dosage: DOSE : 200 MG
  9. METHYLPHENIDATE [Concomitant]
     Active Substance: METHYLPHENIDATE
     Dosage: DOSE : 30 MG
  10. METHYLPHENIDATE [Concomitant]
     Active Substance: METHYLPHENIDATE
     Dosage: DOSE : 30 MG
  11. MODAFINIL [Concomitant]
     Active Substance: MODAFINIL
     Dosage: DOSE : 250 MG
  12. MODAFINIL [Concomitant]
     Active Substance: MODAFINIL
     Dosage: DOSE : 250 MG
  13. CITALOPRAM [Concomitant]
     Active Substance: CITALOPRAM HYDROBROMIDE
     Dosage: DOSE : 15 MG
  14. CITALOPRAM [Concomitant]
     Active Substance: CITALOPRAM HYDROBROMIDE
     Dosage: DOSE : 15 MG

REACTIONS (1)
  - Off label use [Unknown]
